FAERS Safety Report 7360808-X (Version None)
Quarter: 2011Q1

REPORT INFORMATION
  Report Type: 
  Country: None (occurrence: None)
  Receive Date: 20110318
  Receipt Date: 20110316
  Transmission Date: 20110831
  Serious: Yes (Death)
  Sender: FDA-Public Use
  Company Number: VE-PFIZER INC-2011057700

PATIENT
  Age: 73 Year
  Sex: Male

DRUGS (1)
  1. LIPITOR [Suspect]
     Indication: ARTERIOSCLEROSIS CORONARY ARTERY

REACTIONS (1)
  - DEATH [None]
